FAERS Safety Report 25076519 (Version 1)
Quarter: 2025Q1

REPORT INFORMATION
  Report Type: Spontaneous
  Country: FR (occurrence: FR)
  Receive Date: 20250313
  Receipt Date: 20250313
  Transmission Date: 20250408
  Serious: Yes (Death)
  Sender: PFIZER
  Company Number: None

PATIENT
  Age: 48 Year
  Sex: Male
  Weight: 71 kg

DRUGS (5)
  1. PACLITAXEL [Suspect]
     Active Substance: PACLITAXEL
     Indication: Testicular germ cell tumour
     Route: 042
     Dates: start: 20241202, end: 20241224
  2. BLEOMYCIN [Suspect]
     Active Substance: BLEOMYCIN SULFATE
     Indication: Testicular germ cell tumour
     Dosage: 30 MG, DAILY ON DAY 1, DAY 8 AND DAY 15
     Route: 042
     Dates: start: 20241112, end: 20250107
  3. ETOPOSIDE [Suspect]
     Active Substance: ETOPOSIDE
     Indication: Testicular germ cell tumour
     Dosage: 100 MG/M2, DAILY FROM DAY 1 TO DAY 5
     Route: 042
     Dates: start: 20241112, end: 20241228
  4. CISPLATIN [Suspect]
     Active Substance: CISPLATIN
     Indication: Testicular germ cell tumour
     Dosage: 20 MG/M2, DAILY FROM DAY 1 TO DAY 5
     Route: 042
     Dates: start: 20241112, end: 20241228
  5. OXALIPLATIN [Suspect]
     Active Substance: OXALIPLATIN
     Indication: Testicular germ cell tumour
     Route: 042
     Dates: start: 20241212, end: 20250102

REACTIONS (1)
  - Interstitial lung disease [Fatal]

NARRATIVE: CASE EVENT DATE: 20250107
